FAERS Safety Report 5830205-4 (Version None)
Quarter: 2008Q3

REPORT INFORMATION
  Report Type: 
  Country: None (occurrence: None)
  Receive Date: 20080801
  Receipt Date: 20080725
  Transmission Date: 20090109
  Serious: Yes (Other)
  Sender: FDA-Public Use
  Company Number: A0739572A

PATIENT
  Age: 47 Year
  Sex: Female
  Weight: 59.1 kg

DRUGS (2)
  1. REQUIP [Suspect]
     Indication: RESTLESS LEGS SYNDROME
     Dosage: 2MG SINGLE DOSE
     Route: 048
     Dates: start: 20080722, end: 20080722
  2. FOSAMAX [Concomitant]

REACTIONS (10)
  - ASTHENIA [None]
  - DIARRHOEA [None]
  - DIZZINESS [None]
  - DYSKINESIA [None]
  - FEELING DRUNK [None]
  - HEADACHE [None]
  - HYPERHIDROSIS [None]
  - PALPITATIONS [None]
  - RETCHING [None]
  - SYNCOPE VASOVAGAL [None]
